FAERS Safety Report 8130171-5 (Version None)
Quarter: 2012Q1

REPORT INFORMATION
  Report Type: 
  Country: None (occurrence: None)
  Receive Date: 20120210
  Receipt Date: 20120202
  Transmission Date: 20120608
  Serious: Yes (Hospitalization, Other)
  Sender: FDA-Public Use
  Company Number: US-ELI_LILLY_AND_COMPANY-US201110004532

PATIENT
  Age: 60 Year
  Sex: Female
  Weight: 86.168 kg

DRUGS (5)
  1. GEMFIBROZIL [Concomitant]
     Dosage: UNK, UNKNOWN
  2. METFORMIN HCL [Concomitant]
     Indication: DIABETES MELLITUS
     Dosage: UNK, UNKNOWN
  3. ATENOLOL [Concomitant]
     Dosage: UNK, UNKNOWN
  4. LISINOPRIL [Concomitant]
     Dosage: UNK, UNKNOWN
  5. BYETTA [Suspect]
     Dosage: UNK
     Dates: start: 20070701

REACTIONS (5)
  - NAUSEA [None]
  - VOMITING [None]
  - PANCREATITIS [None]
  - MALAISE [None]
  - ABDOMINAL PAIN [None]
